FAERS Safety Report 7389238-1 (Version None)
Quarter: 2011Q2

REPORT INFORMATION
  Report Type: 
  Country: None (occurrence: None)
  Receive Date: 20110401
  Receipt Date: 20101229
  Transmission Date: 20111010
  Serious: No
  Sender: FDA-Public Use
  Company Number: US-BAYER-2011-026694

PATIENT
  Sex: Male
  Weight: 104 kg

DRUGS (2)
  1. ALEVE (CAPLET) [Suspect]
     Indication: BACK INJURY
     Dosage: TOTAL DAILY DOSE 660 MG, BOTTLE COUNT 24S
     Route: 048
     Dates: start: 20101219
  2. ALEVE (CAPLET) [Suspect]
     Dosage: 440 MG, BID, BOTTLE COUNT 24S
     Route: 048
     Dates: start: 20101229, end: 20101229

REACTIONS (1)
  - DIARRHOEA [None]
